FAERS Safety Report 8949425 (Version 1)
Quarter: 2012Q4

REPORT INFORMATION
  Report Type: 
  Country: US (occurrence: US)
  Receive Date: 20121206
  Receipt Date: 20121206
  Transmission Date: 20130627
  Serious: Yes (Hospitalization, Other)
  Sender: FDA-Public Use
  Company Number: 2012SP003292

PATIENT
  Age: 76 Year
  Sex: Female
  Weight: 52 kg

DRUGS (12)
  1. BROVANA [Suspect]
     Indication: LUNG NEOPLASM MALIGNANT
     Route: 055
     Dates: start: 2009, end: 20121102
  2. ANTINEOPLASTIC AGENTS [Concomitant]
     Indication: LUNG NEOPLASM MALIGNANT
     Dates: start: 2009, end: 201207
  3. SIMVASTATIN [Concomitant]
     Indication: BLOOD CHOLESTEROL INCREASED
     Dates: start: 2010
  4. VITAMIN D3 [Concomitant]
     Indication: OSTEOPOROSIS
     Dates: start: 2011
  5. CALTRATE [Concomitant]
     Indication: PRODUCT USED FOR UNKNOWN INDICATION
     Dates: end: 20121026
  6. TYLENOL /00435101/ [Concomitant]
     Indication: PRODUCT USED FOR UNKNOWN INDICATION
  7. VIT B12 [Concomitant]
     Indication: PERNICIOUS ANAEMIA
     Dates: start: 20120131
  8. COMBIVENT [Concomitant]
     Indication: PRODUCT USED FOR UNKNOWN INDICATION
     Dates: start: 2009
  9. COZAAR [Concomitant]
     Indication: HYPERTENSION
     Dates: end: 2009
  10. OXYGEN [Concomitant]
     Indication: OXYGEN SUPPLEMENTATION
     Route: 055
  11. TEGRETOL [Concomitant]
     Indication: CONVULSION
  12. TEGRETOL [Concomitant]
     Indication: CONVULSION

REACTIONS (22)
  - Fall [Recovered/Resolved with Sequelae]
  - Blood pressure increased [Recovering/Resolving]
  - Circadian rhythm sleep disorder [Not Recovered/Not Resolved]
  - Weight decreased [Not Recovered/Not Resolved]
  - Decreased appetite [Not Recovered/Not Resolved]
  - Urine output decreased [Not Recovered/Not Resolved]
  - Hyponatraemia [Not Recovered/Not Resolved]
  - Thyroid disorder [Not Recovered/Not Resolved]
  - Blood glucose abnormal [Not Recovered/Not Resolved]
  - Cognitive disorder [Not Recovered/Not Resolved]
  - Memory impairment [Not Recovered/Not Resolved]
  - Aggression [Not Recovered/Not Resolved]
  - Haematoma [Recovering/Resolving]
  - Muscle spasms [Not Recovered/Not Resolved]
  - Bronchitis [Recovered/Resolved]
  - Hypersensitivity [Not Recovered/Not Resolved]
  - Constipation [Not Recovered/Not Resolved]
  - Pain in extremity [Not Recovered/Not Resolved]
  - Muscle spasms [Not Recovered/Not Resolved]
  - Headache [Not Recovered/Not Resolved]
  - Blood pressure decreased [Recovered/Resolved]
  - Inappropriate schedule of drug administration [None]
